FAERS Safety Report 24843954 (Version 1)
Quarter: 2025Q1

REPORT INFORMATION
  Report Type: Spontaneous
  Country: GB (occurrence: GB)
  Receive Date: 20250115
  Receipt Date: 20250115
  Transmission Date: 20250408
  Serious: Yes (Other)
  Sender: RANBAXY
  Company Number: GB-MHRA-TPP35310615C22628363YC1735559267111

PATIENT
  Age: 75 Year
  Sex: Female
  Weight: 58 kg

DRUGS (6)
  1. ROSUVASTATIN [Suspect]
     Active Substance: ROSUVASTATIN
     Indication: Ill-defined disorder
     Route: 065
     Dates: start: 20241106, end: 20241204
  2. AEROCHAMBER PLUS [Concomitant]
     Indication: Ill-defined disorder
     Route: 065
     Dates: start: 20231102
  3. ESTRADIOL [Concomitant]
     Active Substance: ESTRADIOL
     Indication: Ill-defined disorder
     Route: 065
     Dates: start: 20231102
  4. PEAK FLOW METER [Concomitant]
     Indication: Ill-defined disorder
     Route: 065
     Dates: start: 20231102
  5. ALBUTEROL [Concomitant]
     Active Substance: ALBUTEROL
     Indication: Ill-defined disorder
     Route: 065
     Dates: start: 20231102
  6. BEMPEDOIC ACID [Concomitant]
     Active Substance: BEMPEDOIC ACID
     Indication: Ill-defined disorder
     Route: 065
     Dates: start: 20240716, end: 20241106

REACTIONS (3)
  - Muscle spasms [Unknown]
  - Abdominal pain [Unknown]
  - Pain [Unknown]
